FAERS Safety Report 8058794-2 (Version None)
Quarter: 2012Q1

REPORT INFORMATION
  Report Type: 
  Country: None (occurrence: None)
  Receive Date: 20120119
  Receipt Date: 20120119
  Transmission Date: 20120608
  Serious: Yes (Hospitalization)
  Sender: FDA-Public Use
  Company Number: None

PATIENT
  Age: 87 Year
  Sex: Female
  Weight: 54 kg

DRUGS (16)
  1. GUIATUSS [Concomitant]
  2. LOPERAMIDE [Concomitant]
  3. ASPIRIN [Suspect]
     Indication: ATRIAL FIBRILLATION
     Dosage: 81 MG DAILY PO CHRONIC
     Route: 048
  4. MOM [Concomitant]
  5. ENALOPRIL [Concomitant]
  6. LASIX [Concomitant]
  7. METOPROLOL TARTRATE [Concomitant]
  8. ACETAMINOPHEN [Concomitant]
  9. COUMADIN [Suspect]
     Indication: ATRIAL FIBRILLATION
     Dosage: 2MG TTHS PO CHRONIC
     Route: 048
  10. MYLANTA [Concomitant]
  11. Q-PAP [Concomitant]
  12. KCL/NS [Concomitant]
  13. COUMADIN [Suspect]
     Indication: ATRIAL FIBRILLATION
     Dosage: 1MG SUN MWF PO CHRONIC
     Route: 048
  14. CRESTOR [Concomitant]
  15. COLACE [Concomitant]
  16. LEVOTHYROXINE SODIUM [Concomitant]

REACTIONS (3)
  - INTERNATIONAL NORMALISED RATIO INCREASED [None]
  - HAEMATEMESIS [None]
  - FAILURE TO THRIVE [None]
